FAERS Safety Report 15210686 (Version 1)
Quarter: 2018Q3

REPORT INFORMATION
  Report Type: Spontaneous
  Country: GB (occurrence: GB)
  Receive Date: 20180728
  Receipt Date: 20180728
  Transmission Date: 20181010
  Serious: Yes (Life-Threatening, Hospitalization, Other)
  Sender: FDA-Public Use
  Company Number: GB-TEVA-2018-GB-930322

PATIENT
  Age: 44 Year
  Sex: Male

DRUGS (6)
  1. CLOZAPINE. [Suspect]
     Active Substance: CLOZAPINE
     Dosage: 5 MILLIGRAM DAILY; MORNING
     Route: 065
  2. EPILIM [Concomitant]
     Active Substance: VALPROATE SODIUM
  3. TRIHEXYPHENIDYL [Suspect]
     Active Substance: TRIHEXYPHENIDYL
     Dosage: 1 MILLIGRAM DAILY; MORNING
     Route: 065
  4. SIMVASTATIN. [Concomitant]
     Active Substance: SIMVASTATIN
  5. ATENOLOL. [Concomitant]
     Active Substance: ATENOLOL
  6. ARIPIPRAZOLE. [Suspect]
     Active Substance: ARIPIPRAZOLE
     Dosage: 275 MILLIGRAM DAILY; 75MG MORNING, 200MG NIGHT
     Route: 048

REACTIONS (1)
  - Diabetic ketoacidosis [Recovering/Resolving]
